FAERS Safety Report 10515525 (Version 1)
Quarter: 2014Q4

REPORT INFORMATION
  Report Type: Spontaneous
  Country: FR (occurrence: FR)
  Receive Date: 20141014
  Receipt Date: 20141014
  Transmission Date: 20150528
  Serious: Yes (Other)
  Sender: FDA-Public Use
  Company Number: FR-UCBSA-2014014005

PATIENT
  Age: 0 Year
  Sex: Male
  Weight: 1.79 kg

DRUGS (7)
  1. CIMZIA [Suspect]
     Active Substance: CERTOLIZUMAB PEGOL
     Dosage: 200 MG, EV 2 WEEKS(QOW)
     Route: 064
     Dates: start: 20130725, end: 20140122
  2. ALTIM [Concomitant]
     Active Substance: CORTIVAZOL
     Indication: PRODUCT USED FOR UNKNOWN INDICATION
     Dosage: 1 PHIAL DAILY
     Route: 064
     Dates: end: 20140115
  3. TRANDATE [Concomitant]
     Active Substance: LABETALOL HYDROCHLORIDE
     Indication: HYPERTENSION
  4. SOLU-MEDROL [Concomitant]
     Active Substance: METHYLPREDNISOLONE SODIUM SUCCINATE
     Indication: PSORIATIC ARTHROPATHY
     Dosage: UNK
  5. CIMZIA [Suspect]
     Active Substance: CERTOLIZUMAB PEGOL
     Indication: PSORIATIC ARTHROPATHY
     Dosage: 400 MG, UNK
     Route: 064
     Dates: start: 20130703, end: 201307
  6. ENBREL [Concomitant]
     Active Substance: ETANERCEPT
     Indication: PRODUCT USED FOR UNKNOWN INDICATION
     Dosage: UNK
     Route: 064
     Dates: end: 201306
  7. PREDNISONE. [Concomitant]
     Active Substance: PREDNISONE
     Indication: PRODUCT USED FOR UNKNOWN INDICATION
     Dosage: DAILY DOSE: 30 MG
     Route: 064

REACTIONS (6)
  - Premature baby [Recovered/Resolved]
  - Inguinal hernia [Recovered/Resolved]
  - Low birth weight baby [Recovered/Resolved]
  - Foetal exposure during pregnancy [Unknown]
  - Foetal growth restriction [Recovered/Resolved]
  - Umbilical cord around neck [Recovered/Resolved]

NARRATIVE: CASE EVENT DATE: 20130703
